FAERS Safety Report 6287742-0 (Version None)
Quarter: 2009Q3

REPORT INFORMATION
  Report Type: 
  Country: None (occurrence: None)
  Receive Date: 20090727
  Receipt Date: 20090727
  Transmission Date: 20100115
  Serious: Yes (Other)
  Sender: FDA-Public Use
  Company Number: None

PATIENT
  Sex: Male
  Weight: 134.5 kg

DRUGS (1)
  1. METFORMIN HCL [Suspect]
     Indication: TYPE 2 DIABETES MELLITUS
     Dosage: 500 MG 2 QD PO
     Route: 048
     Dates: start: 20090604, end: 20090612

REACTIONS (3)
  - NAUSEA [None]
  - PRODUCT ODOUR ABNORMAL [None]
  - RASH [None]
